FAERS Safety Report 20263340 (Version 2)
Quarter: 2022Q1

REPORT INFORMATION
  Report Type: Report from Study
  Country: CA (occurrence: CA)
  Receive Date: 20211231
  Receipt Date: 20220105
  Transmission Date: 20220423
  Serious: Yes (Other)
  Sender: FDA-Public Use
  Company Number: CA-JNJFOC-20211260827

PATIENT
  Age: 27 Year
  Sex: Female
  Weight: 54.2 kg

DRUGS (1)
  1. REMICADE [Suspect]
     Active Substance: INFLIXIMAB
     Indication: Colitis ulcerative
     Dosage: ON 28-DEC-2021, THE PATIENT RECEIVED 2ND INFLIXIMAB, RECOMBINANT INFUSION AT DOSE OF 300 MG AND PART
     Route: 042
     Dates: start: 20211217

REACTIONS (6)
  - Rectal haemorrhage [Not Recovered/Not Resolved]
  - Proctalgia [Unknown]
  - Flatulence [Unknown]
  - Diarrhoea [Unknown]
  - Frequent bowel movements [Unknown]
  - General physical health deterioration [Unknown]

NARRATIVE: CASE EVENT DATE: 20211226
